FAERS Safety Report 7778445-1 (Version None)
Quarter: 2011Q3

REPORT INFORMATION
  Report Type: 
  Country: None (occurrence: None)
  Receive Date: 20110926
  Receipt Date: 20100503
  Transmission Date: 20111222
  Serious: Yes (Other)
  Sender: FDA-Public Use
  Company Number: FR-GLAXOSMITHKLINE-B0649751A

PATIENT
  Sex: Male

DRUGS (4)
  1. IBUPROFEN [Suspect]
     Indication: PRODUCT USED FOR UNKNOWN INDICATION
     Route: 065
  2. VALACYCLOVIR HYDROCHLORIDE [Suspect]
     Indication: ORAL HERPES
     Route: 048
  3. NAPROXEN [Suspect]
     Indication: BACK PAIN
     Route: 065
     Dates: start: 20100420, end: 20100401
  4. ANTI INFLAMMATORY DRUG [Suspect]
     Indication: BACK PAIN
     Route: 065

REACTIONS (9)
  - ANGIOEDEMA [None]
  - SWELLING FACE [None]
  - LIP SWELLING [None]
  - ERYTHEMA [None]
  - DRUG INTERACTION [None]
  - INTENTIONAL DRUG MISUSE [None]
  - PARAESTHESIA ORAL [None]
  - OCULAR HYPERAEMIA [None]
  - RASH GENERALISED [None]
